FAERS Safety Report 5488904-2 (Version None)
Quarter: 2007Q4

REPORT INFORMATION
  Report Type: 
  Country: None (occurrence: None)
  Receive Date: 20071015
  Receipt Date: 20070622
  Transmission Date: 20080405
  Serious: No
  Sender: FDA-Public Use
  Company Number: 2007SP002335

PATIENT
  Age: 81 Year
  Sex: Male
  Weight: 81.6475 kg

DRUGS (7)
  1. LUNESTA [Suspect]
     Indication: INSOMNIA
     Dosage: 1 MG; PRN; ORAL 2 MG;PRN; ORAL
     Route: 048
     Dates: start: 20070401, end: 20070401
  2. LUNESTA [Suspect]
     Indication: INSOMNIA
     Dosage: 1 MG; PRN; ORAL 2 MG;PRN; ORAL
     Route: 048
     Dates: start: 20070401, end: 20070401
  3. WARFARIN SODIUM [Concomitant]
  4. PROSCAR [Concomitant]
  5. CYMBALTA [Concomitant]
  6. PRAMIPEXOLE DIHYDROCHLORIDE [Concomitant]
  7. AMLODIPINE [Concomitant]

REACTIONS (1)
  - MIDDLE INSOMNIA [None]
